FAERS Safety Report 5159091-5 (Version None)
Quarter: 2006Q4

REPORT INFORMATION
  Report Type: 
  Country: None (occurrence: None)
  Receive Date: 20061128
  Receipt Date: 20061026
  Transmission Date: 20070319
  Serious: Yes (Hospitalization)
  Sender: FDA-Public Use
  Company Number: MX-BOEHRINGER INGELHEIM PHARMACEUTICALS, INC.-2006-BP-12589MX

PATIENT
  Sex: Female
  Weight: 12.5 kg

DRUGS (3)
  1. TIPRANAVIR/RITONAVIR SOLUTION [Suspect]
     Indication: HIV INFECTION
     Dosage: TIP/RTV 375/150 MG/M2/ DAY
     Route: 048
     Dates: start: 20041110
  2. ZIAGENAVIR [Concomitant]
     Indication: HIV INFECTION
     Route: 048
     Dates: start: 20001128
  3. ABACAVIR [Concomitant]
     Indication: HIV INFECTION
     Route: 048
     Dates: start: 20020905

REACTIONS (2)
  - DIARRHOEA HAEMORRHAGIC [None]
  - GASTROINTESTINAL INFECTION [None]
